FAERS Safety Report 8512347-8 (Version None)
Quarter: 2012Q2

REPORT INFORMATION
  Report Type: 
  Country: None (occurrence: None)
  Receive Date: 20120405
  Receipt Date: 20080725
  Transmission Date: 20120825
  Serious: No
  Sender: FDA-Public Use
  Company Number: PHEH2008US06657

PATIENT
  Age: 56 Year
  Sex: Female

DRUGS (1)
  1. RECLAST [Suspect]
     Indication: OSTEOPOROSIS
     Dosage: INFUSION
     Dates: start: 20080707

REACTIONS (5)
  - PARAESTHESIA [None]
  - JOINT STIFFNESS [None]
  - HYPOAESTHESIA ORAL [None]
  - MOVEMENT DISORDER [None]
  - INFLAMMATION [None]
